FAERS Safety Report 10932645 (Version 1)
Quarter: 2015Q1

REPORT INFORMATION
  Report Type: Spontaneous
  Country: US (occurrence: None)
  Receive Date: 20150319
  Receipt Date: 20150319
  Transmission Date: 20150721
  Serious: Yes (Disabling, Other)
  Sender: FDA-Public Use
  Company Number: None

PATIENT
  Age: 70 Year
  Sex: Female
  Weight: 72.12 kg

DRUGS (5)
  1. ALIVE [Concomitant]
  2. APIDRA IN INSULIN PUMP [Concomitant]
  3. VALSARTAN. [Suspect]
     Active Substance: VALSARTAN
     Indication: DIABETES MELLITUS
     Route: 048
  4. ASPIRIN. [Concomitant]
     Active Substance: ASPIRIN
  5. ZOLPIDEM [Concomitant]
     Active Substance: ZOLPIDEM\ZOLPIDEM TARTRATE

REACTIONS (2)
  - Alopecia [None]
  - Product substitution issue [None]
